FAERS Safety Report 10114487 (Version 3)
Quarter: 2014Q3

REPORT INFORMATION
  Report Type: Spontaneous
  Country: IT (occurrence: IT)
  Receive Date: 20140426
  Receipt Date: 20140813
  Transmission Date: 20150326
  Serious: Yes (Other)
  Sender: FDA-Public Use
  Company Number: IT-ROCHE-1390296

PATIENT
  Age: 57 Year
  Sex: Male

DRUGS (1)
  1. ZELBORAF [Suspect]
     Active Substance: VEMURAFENIB
     Indication: MALIGNANT MELANOMA
     Route: 048
     Dates: start: 20140219, end: 20140519

REACTIONS (6)
  - Actinic keratosis [Recovered/Resolved]
  - Electrocardiogram QT prolonged [Recovered/Resolved]
  - Dysaesthesia [Recovered/Resolved]
  - Conjunctivitis [Recovered/Resolved]
  - Asthenia [Recovered/Resolved]
  - Hyperbilirubinaemia [Recovered/Resolved]

NARRATIVE: CASE EVENT DATE: 20140321
